FAERS Safety Report 12833104 (Version 1)
Quarter: 2016Q4

REPORT INFORMATION
  Report Type: Spontaneous
  Country: AU (occurrence: AU)
  Receive Date: 20161010
  Receipt Date: 20161010
  Transmission Date: 20170207
  Serious: Yes (Other)
  Sender: FDA-Public Use
  Company Number: AU-VALIDUS PHARMACEUTICALS LLC-AU-2016VAL002806

PATIENT
  Age: 66 Year
  Sex: Male

DRUGS (1)
  1. FUROSEMIDE. [Suspect]
     Active Substance: FUROSEMIDE
     Indication: HAEMODIALYSIS
     Dosage: UNK
     Route: 065

REACTIONS (4)
  - Pseudoporphyria [Unknown]
  - Blister [Recovered/Resolved]
  - Skin discolouration [Unknown]
  - Pallor [Unknown]
